FAERS Safety Report 13637715 (Version 1)
Quarter: 2017Q2

REPORT INFORMATION
  Report Type: Spontaneous
  Country: GB (occurrence: GB)
  Receive Date: 20170609
  Receipt Date: 20170609
  Transmission Date: 20170830
  Serious: Yes (Hospitalization, Disabling, Other)
  Sender: FDA-Public Use
  Company Number: GB-TEVA-776744ACC

PATIENT
  Age: 14 Year
  Sex: Female
  Weight: 66 kg

DRUGS (6)
  1. MONTELUKAST [Concomitant]
     Active Substance: MONTELUKAST SODIUM
  2. SALBUTAMOL BASE [Concomitant]
  3. GABAPENTIN. [Suspect]
     Active Substance: GABAPENTIN
     Indication: NEUROMUSCULAR PAIN
     Dosage: 900 MILLIGRAM DAILY;
     Route: 048
     Dates: end: 20150314
  4. SERETIDE [Concomitant]
     Active Substance: FLUTICASONE PROPIONATE\SALMETEROL XINAFOATE
  5. GABAPENTIN. [Suspect]
     Active Substance: GABAPENTIN
     Indication: NEUROMUSCULAR PAIN
     Dosage: 900 MILLIGRAM DAILY;
     Route: 048
     Dates: start: 20150314
  6. AMITRIPTYLIN [Concomitant]
     Active Substance: AMITRIPTYLINE

REACTIONS (7)
  - Paralysis [Unknown]
  - Drug ineffective [Unknown]
  - Seizure [Recovered/Resolved]
  - Movement disorder [Unknown]
  - Muscular weakness [Not Recovered/Not Resolved]
  - Dysarthria [Not Recovered/Not Resolved]
  - Lethargy [Unknown]

NARRATIVE: CASE EVENT DATE: 20150315
